FAERS Safety Report 4819379-1 (Version None)
Quarter: 2005Q4

REPORT INFORMATION
  Report Type: 
  Country: None (occurrence: None)
  Receive Date: 20051103
  Receipt Date: 20051027
  Transmission Date: 20060501
  Serious: Yes (Other)
  Sender: FDA-Public Use
  Company Number: 200513847EU

PATIENT
  Age: 55 Year
  Sex: Female

DRUGS (1)
  1. NICODERM [Suspect]
     Route: 062
     Dates: start: 20050201, end: 20050601

REACTIONS (4)
  - ASTHMA [None]
  - COUGH [None]
  - DYSPNOEA [None]
  - NAUSEA [None]
